FAERS Safety Report 4710721-9 (Version None)
Quarter: 2005Q3

REPORT INFORMATION
  Report Type: 
  Country: None (occurrence: None)
  Receive Date: 20050711
  Receipt Date: 20050621
  Transmission Date: 20060218
  Serious: Yes (Hospitalization)
  Sender: FDA-Public Use
  Company Number: HK-BRISTOL-MYERS SQUIBB COMPANY-13010046

PATIENT
  Age: 66 Year
  Sex: Male

DRUGS (4)
  1. BLINDED: MURAGLITAZAR [Suspect]
     Indication: DIABETES MELLITUS NON-INSULIN-DEPENDENT
     Route: 048
     Dates: start: 20041217
  2. GLIMEPIRIDE [Suspect]
     Indication: DIABETES MELLITUS NON-INSULIN-DEPENDENT
     Route: 048
     Dates: start: 20041217
  3. METFORMIN HCL [Suspect]
     Indication: DIABETES MELLITUS NON-INSULIN-DEPENDENT
     Route: 048
     Dates: start: 20040930
  4. TIMOLOL MALEATE [Concomitant]
     Dosage: DOSE: 2 DROPS DAILY
     Dates: start: 20040910

REACTIONS (1)
  - CHOLANGITIS ACUTE [None]
